FAERS Safety Report 9780007 (Version 3)
Quarter: 2014Q1

REPORT INFORMATION
  Report Type: Spontaneous
  Country: MX (occurrence: MX)
  Receive Date: 20131223
  Receipt Date: 20140121
  Transmission Date: 20141002
  Serious: Yes (Other)
  Sender: FDA-Public Use
  Company Number: MX-GLAXOSMITHKLINE-A1054558A

PATIENT
  Age: 32 Year
  Sex: Female
  Weight: 81 kg

DRUGS (4)
  1. AROPAX [Suspect]
     Indication: ANXIETY
     Dosage: 20MG PER DAY
     Route: 048
     Dates: start: 201301, end: 201311
  2. TRILEPTAL [Concomitant]
     Indication: PETIT MAL EPILEPSY
     Dosage: 300MGD PER DAY
     Route: 048
     Dates: start: 201010
  3. CLONAZEPAM [Concomitant]
     Indication: ANXIETY
     Dosage: .5MG UNKNOWN
     Route: 048
     Dates: start: 201101
  4. LEVETIRACETAM [Concomitant]
     Indication: ANXIETY
     Dosage: 600MGD PER DAY
     Route: 048
     Dates: start: 201301

REACTIONS (10)
  - Weight increased [Recovered/Resolved]
  - Hunger [Recovered/Resolved]
  - Therapeutic response unexpected [Unknown]
  - Drug hypersensitivity [Unknown]
  - Nervous system disorder [Unknown]
  - Anxiety [Not Recovered/Not Resolved]
  - Erythema [Recovered/Resolved]
  - Urticaria [Recovered/Resolved]
  - Drug administration error [Recovered/Resolved]
  - Increased appetite [Unknown]
